FAERS Safety Report 11736830 (Version 4)
Quarter: 2015Q4

REPORT INFORMATION
  Report Type: Spontaneous
  Country: US (occurrence: US)
  Receive Date: 20151113
  Receipt Date: 20151214
  Transmission Date: 20160304
  Serious: No
  Sender: FDA-Public Use
  Company Number: US-JNJFOC-20151007273

PATIENT
  Age: 62 Year
  Sex: Male
  Weight: 97.52 kg

DRUGS (3)
  1. LIPITOR [Concomitant]
     Active Substance: ATORVASTATIN CALCIUM
     Indication: BLOOD CHOLESTEROL INCREASED
     Route: 065
  2. IMODIUM MULTI-SYMPTOM RELIEF [Suspect]
     Active Substance: DIMETHICONE\LOPERAMIDE HYDROCHLORIDE
     Indication: DIARRHOEA
     Dosage: 1-2 CAPLETS ??, 2X
     Route: 048
     Dates: start: 20151008, end: 20151008
  3. IMODIUM MULTI-SYMPTOM RELIEF [Suspect]
     Active Substance: DIMETHICONE\LOPERAMIDE HYDROCHLORIDE
     Indication: FLATULENCE
     Dosage: 1-2 CAPLETS ??, 2X
     Route: 048
     Dates: start: 20151008, end: 20151008

REACTIONS (2)
  - Abdominal pain upper [Unknown]
  - Expired product administered [Unknown]

NARRATIVE: CASE EVENT DATE: 20151008
